FAERS Safety Report 17295889 (Version 10)
Quarter: 2020Q4

REPORT INFORMATION
  Report Type: Spontaneous
  Country: US (occurrence: US)
  Receive Date: 20200121
  Receipt Date: 20201021
  Transmission Date: 20210113
  Serious: Yes (Other)
  Sender: FDA-Public Use
  Company Number: US-PFIZER INC-2020026061

PATIENT
  Age: 83 Year
  Sex: Female
  Weight: 47.63 kg

DRUGS (3)
  1. DILANTIN [Suspect]
     Active Substance: PHENYTOIN
     Indication: SEIZURE
     Dosage: 100 MG, TWICE DAILY
     Route: 048
  2. DILANTIN [Suspect]
     Active Substance: PHENYTOIN
     Dosage: 60 MG, TWICE DAILY
     Route: 048
  3. DILANTIN [Suspect]
     Active Substance: PHENYTOIN
     Dosage: 160 MG, DAILY (SHE TAKES THE 100MG AND TWO OF THE 30MG, ONCE IN THE MORNING AND ONCE AT NIGHT)

REACTIONS (8)
  - Fatigue [Unknown]
  - Macular degeneration [Unknown]
  - Foot fracture [Unknown]
  - Cataract [Unknown]
  - Bone disorder [Unknown]
  - Dysphonia [Unknown]
  - Nasopharyngitis [Unknown]
  - Oropharyngeal discomfort [Unknown]

NARRATIVE: CASE EVENT DATE: 2020
